FAERS Safety Report 7791374-2 (Version None)
Quarter: 2011Q4

REPORT INFORMATION
  Report Type: 
  Country: None (occurrence: None)
  Receive Date: 20111003
  Receipt Date: 20110920
  Transmission Date: 20120403
  Serious: Yes (Other)
  Sender: FDA-Public Use
  Company Number: AU-JNJFOC-20110711121

PATIENT
  Age: 18 Year
  Sex: Female
  Weight: 97 kg

DRUGS (2)
  1. REMICADE [Suspect]
     Route: 042
  2. REMICADE [Suspect]
     Indication: CROHN'S DISEASE
     Route: 042
     Dates: start: 20090101, end: 20101101

REACTIONS (6)
  - NAUSEA [None]
  - INFUSION RELATED REACTION [None]
  - TACHYCARDIA [None]
  - WEIGHT DECREASED [None]
  - MALAISE [None]
  - FLUSHING [None]
